FAERS Safety Report 9156357 (Version 1)
Quarter: 2013Q1

REPORT INFORMATION
  Report Type: Spontaneous
  Country: RO (occurrence: None)
  Receive Date: 20130208
  Receipt Date: 20130208
  Transmission Date: 20140127
  Serious: Yes (Hospitalization)
  Sender: FDA-Public Use
  Company Number: KAD201301-00021

PATIENT
  Age: 55 Year
  Sex: Female

DRUGS (2)
  1. RIBAVIRIN (RIBAVIRIN) [Suspect]
     Indication: CHRONIC HEPATITIS C
     Dates: start: 200812, end: 200806
  2. PEGYLATED ALFA-2A INTERFERON [Suspect]
     Indication: CHRONIC HEPATITIS C
     Dates: start: 200812, end: 200906

REACTIONS (11)
  - Acquired haemophilia [None]
  - Gastrointestinal haemorrhage [None]
  - Muscle haemorrhage [None]
  - Spontaneous haematoma [None]
  - Ecchymosis [None]
  - Purpura [None]
  - Catheter site haemorrhage [None]
  - Haematuria [None]
  - Melaena [None]
  - Rectal haemorrhage [None]
  - Haemoglobin decreased [None]
